FAERS Safety Report 20834457 (Version 3)
Quarter: 2023Q1

REPORT INFORMATION
  Report Type: Spontaneous
  Country: US (occurrence: US)
  Receive Date: 20220516
  Receipt Date: 20230117
  Transmission Date: 20230417
  Serious: No
  Sender: FDA-Public Use
  Company Number: US-PFIZER INC-202200654755

PATIENT
  Age: 65 Year
  Sex: Male

DRUGS (1)
  1. INLYTA [Suspect]
     Active Substance: AXITINIB
     Dosage: 5 MG

REACTIONS (6)
  - Fatigue [Unknown]
  - Gingival pain [Unknown]
  - Toothache [Unknown]
  - Decreased appetite [Unknown]
  - Somnolence [Unknown]
  - Diarrhoea [Unknown]
